FAERS Safety Report 9209965 (Version 2)
Quarter: 2013Q2

REPORT INFORMATION
  Report Type: Spontaneous
  Country: US (occurrence: US)
  Receive Date: 20130404
  Receipt Date: 20130517
  Transmission Date: 20140414
  Serious: Yes (Other)
  Sender: FDA-Public Use
  Company Number: US-ASTELLAS-2013US003071

PATIENT
  Age: 73 Year
  Sex: Female

DRUGS (2)
  1. MYRBETRIQ [Suspect]
     Indication: URGE INCONTINENCE
     Dosage: 25 MG, UID/QD
     Route: 048
     Dates: start: 20130211, end: 20130225
  2. MYRBETRIQ [Suspect]
     Indication: STRESS URINARY INCONTINENCE

REACTIONS (4)
  - Off label use [Unknown]
  - Ligament sprain [Unknown]
  - Fall [Unknown]
  - Muscle spasms [Recovered/Resolved]
